FAERS Safety Report 24977009 (Version 3)
Quarter: 2025Q2

REPORT INFORMATION
  Report Type: Spontaneous
  Country: CA (occurrence: CA)
  Receive Date: 20250217
  Receipt Date: 20250514
  Transmission Date: 20250716
  Serious: Yes (Hospitalization, Other)
  Sender: CELLTRION
  Company Number: CA-PFIZER INC-PV202500000692

PATIENT

DRUGS (4)
  1. INFLECTRA [Suspect]
     Active Substance: INFLIXIMAB-DYYB
     Indication: Colitis ulcerative
     Route: 042
     Dates: start: 20240924
  2. INFLECTRA [Suspect]
     Active Substance: INFLIXIMAB-DYYB
     Route: 042
     Dates: start: 20241105
  3. INFLECTRA [Suspect]
     Active Substance: INFLIXIMAB-DYYB
     Route: 042
     Dates: start: 20250207
  4. INFLECTRA [Suspect]
     Active Substance: INFLIXIMAB-DYYB
     Route: 042
     Dates: start: 20250304

REACTIONS (13)
  - Anal abscess [Not Recovered/Not Resolved]
  - Flushing [Recovering/Resolving]
  - Cough [Recovering/Resolving]
  - Chest discomfort [Recovering/Resolving]
  - Respiratory tract oedema [Recovered/Resolved]
  - Blood pressure increased [Recovered/Resolved]
  - Heart rate increased [Recovered/Resolved]
  - Respiratory rate increased [Recovered/Resolved]
  - Oxygen saturation decreased [Recovered/Resolved]
  - Chest pain [Recovering/Resolving]
  - Dyspnoea [Recovering/Resolving]
  - Tachypnoea [Recovering/Resolving]
  - Flank pain [Recovering/Resolving]

NARRATIVE: CASE EVENT DATE: 20240101
